FAERS Safety Report 21588994 (Version 2)
Quarter: 2023Q1

REPORT INFORMATION
  Report Type: Spontaneous
  Country: BE (occurrence: BE)
  Receive Date: 20221114
  Receipt Date: 20230307
  Transmission Date: 20230418
  Serious: Yes (Hospitalization, Other)
  Sender: FDA-Public Use
  Company Number: BE-BoehringerIngelheim-2022-BI-198906

PATIENT
  Age: 72 Year
  Sex: Female
  Weight: 53 kg

DRUGS (22)
  1. BISOPROLOL [Suspect]
     Active Substance: BISOPROLOL
     Indication: Cardiac failure
     Dosage: 1.25 MILLIGRAM, TWO TIMES A DAY
     Route: 065
     Dates: start: 20220802, end: 20220914
  2. BISOPROLOL [Suspect]
     Active Substance: BISOPROLOL
     Dosage: 2.5 MILLIGRAM, TWO TIMES A DAY
     Route: 065
     Dates: start: 20220915
  3. JARDIANCE [Suspect]
     Active Substance: EMPAGLIFLOZIN
     Indication: Cardiac failure
     Dosage: 10 MILLIGRAM, ONCE A DAY
     Route: 048
     Dates: start: 20220727
  4. AMLODIPINE BESYLATE [Concomitant]
     Active Substance: AMLODIPINE BESYLATE
     Indication: Hypertension
     Dosage: 10 MILLIGRAM, ONCE A DAY
     Route: 048
     Dates: start: 20180205
  5. ALDACTONE [Concomitant]
     Active Substance: SPIRONOLACTONE
     Indication: Cardiac failure
     Dosage: 25 MILLIGRAM, ONCE A DAY
     Route: 048
     Dates: start: 20051128
  6. ACLIDINIUM BROMIDE [Concomitant]
     Active Substance: ACLIDINIUM BROMIDE
     Indication: Chronic obstructive pulmonary disease
     Dosage: 644 MICROGRAM, ONCE A DAY
     Dates: start: 20140519
  7. BUTYLSCOPOLAMINE BROMIDE [Concomitant]
     Active Substance: BUTYLSCOPOLAMINE BROMIDE
     Indication: Abdominal pain
     Dosage: AS NECESSARY
     Route: 048
     Dates: start: 20210726
  8. BUMETANIDE [Concomitant]
     Active Substance: BUMETANIDE
     Indication: Cardiac failure
     Dosage: 5 MILLIGRAM, ONCE A DAY
     Route: 048
     Dates: start: 20220707, end: 20220914
  9. BUMETANIDE [Concomitant]
     Active Substance: BUMETANIDE
     Dosage: 7.5 MILLIGRAM, ONCE A DAY
     Route: 048
     Dates: start: 20220915
  10. FENOTEROL HYDROBROMIDE [Concomitant]
     Active Substance: FENOTEROL HYDROBROMIDE
     Indication: Chronic obstructive pulmonary disease
     Dosage: AS NECESSARY
     Dates: start: 19950914
  11. OMEPRAZOLE [Concomitant]
     Active Substance: OMEPRAZOLE
     Indication: Prophylaxis
     Dosage: 40 MILLIGRAM, ONCE A DAY
     Route: 048
     Dates: start: 20040207
  12. BECLOMETHASONE DIPROPIONATE\FORMOTEROL FUMARATE [Concomitant]
     Active Substance: BECLOMETHASONE DIPROPIONATE\FORMOTEROL FUMARATE
     Indication: Chronic obstructive pulmonary disease
     Dosage: TWO TIMES A DAY
     Dates: start: 20150210
  13. DAFALGAN [Concomitant]
     Active Substance: ACETAMINOPHEN
     Indication: Arthralgia
     Dosage: AS NECESSARY
     Route: 048
     Dates: start: 20181116
  14. PRAZEPAM [Concomitant]
     Active Substance: PRAZEPAM
     Indication: Insomnia
     Dosage: 10 MILLIGRAM, ONCE A DAY
     Route: 048
     Dates: start: 19930521
  15. SODIUM PICOSULFATE [Concomitant]
     Active Substance: SODIUM PICOSULFATE
     Indication: Constipation
     Dosage: AS NECESSARY
     Route: 048
     Dates: start: 20210726
  16. KEPPRA [Concomitant]
     Active Substance: LEVETIRACETAM
     Indication: Epilepsy
     Dosage: 1000 MILLIGRAM, ONCE A DAY
     Route: 048
     Dates: start: 20180829
  17. LIPITOR [Concomitant]
     Active Substance: ATORVASTATIN CALCIUM
     Indication: Dyslipidaemia
     Dosage: 80 MILLIGRAM, ONCE A DAY
     Route: 048
     Dates: start: 20160726
  18. PHENPROCOUMON [Concomitant]
     Active Substance: PHENPROCOUMON
     Indication: Mitral valve disease
     Dosage: 3 MILLIGRAM, ONCE A DAY
     Route: 048
     Dates: start: 19931122
  19. REMERGON [Concomitant]
     Active Substance: MIRTAZAPINE
     Indication: Depression
     Dosage: 30 MILLIGRAM, ONCE A DAY
     Route: 048
     Dates: start: 20200112
  20. CALCIUM CARBONATE\CHOLECALCIFEROL [Concomitant]
     Active Substance: CALCIUM CARBONATE\CHOLECALCIFEROL
     Indication: Osteoporosis
     Dosage: 1000 MILLIGRAM, ONCE A DAY
     Route: 048
     Dates: start: 20140306
  21. Temesta [Concomitant]
     Indication: Psychogenic seizure
     Dosage: 2 MILLIGRAM, ONCE A DAY
     Route: 048
     Dates: start: 20191126
  22. ALLOPURINOL [Concomitant]
     Active Substance: ALLOPURINOL
     Indication: Gout
     Dosage: 100 MILLIGRAM, ONCE A DAY
     Route: 048
     Dates: start: 20190405

REACTIONS (6)
  - Cardiac failure congestive [Recovered/Resolved]
  - Cardiac failure [Not Recovered/Not Resolved]
  - Abdominal pain [Recovered/Resolved]
  - Bradyarrhythmia [Recovered/Resolved]
  - Abdominal pain upper [Not Recovered/Not Resolved]
  - Fatigue [Not Recovered/Not Resolved]

NARRATIVE: CASE EVENT DATE: 20220723
